FAERS Safety Report 5955521-7 (Version None)
Quarter: 2008Q4

REPORT INFORMATION
  Report Type: 
  Country: None (occurrence: None)
  Receive Date: 20081113
  Receipt Date: 20081104
  Transmission Date: 20090506
  Serious: Yes (Death)
  Sender: FDA-Public Use
  Company Number: 2008AP002815

PATIENT
  Age: 62 Year
  Sex: Female

DRUGS (5)
  1. RISPERDAL [Suspect]
  2. ABILIFY [Suspect]
     Indication: SCHIZOPHRENIA
     Dosage: 20 MG; PO
     Route: 048
     Dates: start: 20070331
  3. CITALOPRAM HYDROBROMIDE [Concomitant]
  4. RISPERDAL [Concomitant]
  5. ZOPICLONE (ZOPICLONE) [Concomitant]

REACTIONS (1)
  - PULMONARY EMBOLISM [None]
